FAERS Safety Report 25772414 (Version 1)
Quarter: 2025Q3

REPORT INFORMATION
  Report Type: Report from Study
  Country: US (occurrence: US)
  Receive Date: 20250908
  Receipt Date: 20250908
  Transmission Date: 20251021
  Serious: Yes (Other)
  Sender: BAYER HEALTHCARE LLC
  Company Number: US-BAYER-2025A115706

PATIENT
  Age: 14 Year
  Weight: 47 kg

DRUGS (2)
  1. ASPIRIN [Suspect]
     Active Substance: ASPIRIN
     Indication: Anticoagulant therapy
     Route: 048
  2. APIXABAN [Suspect]
     Active Substance: APIXABAN
     Indication: Embolism
     Dosage: 5 MG, BID

REACTIONS (3)
  - Haematoma evacuation [None]
  - Product administered to patient of inappropriate age [None]
  - Product prescribing issue [None]
